FAERS Safety Report 8507459-9 (Version None)
Quarter: 2012Q3

REPORT INFORMATION
  Report Type: 
  Country: None (occurrence: None)
  Receive Date: 20120712
  Receipt Date: 20120711
  Transmission Date: 20120928
  Serious: Yes (Other)
  Sender: FDA-Public Use
  Company Number: US-BAYER-2012-069062

PATIENT
  Age: 37 Year
  Sex: Female

DRUGS (2)
  1. DROSPIRENONE AND ETHINYL ESTRADIOL [Suspect]
     Dosage: UNK
     Dates: start: 20090101, end: 20110101
  2. YASMIN [Suspect]
     Dosage: UNK
     Dates: start: 20010101, end: 20090401

REACTIONS (6)
  - NERVOUSNESS [None]
  - DEPRESSION [None]
  - CHOLECYSTECTOMY [None]
  - INJURY [None]
  - EMOTIONAL DISTRESS [None]
  - FEAR OF DEATH [None]
